FAERS Safety Report 9066075 (Version 2)
Quarter: 2013Q1

REPORT INFORMATION
  Report Type: Report from Study
  Country: CA (occurrence: CA)
  Receive Date: 20130214
  Receipt Date: 20130221
  Transmission Date: 20140127
  Serious: Yes (Other)
  Sender: FDA-Public Use
  Company Number: CA-UCBSA-074120

PATIENT
  Age: 57 Year
  Sex: Female
  Weight: 52.2 kg

DRUGS (5)
  1. CIMZIA [Suspect]
     Indication: RHEUMATOID ARTHRITIS
     Route: 058
     Dates: start: 20130207
  2. CIMZIA [Suspect]
     Indication: RHEUMATOID ARTHRITIS
     Dosage: 200 MG ONCE IN EVERY 2 WEEKS (TREATMENT INTERRUPTED)
     Route: 058
     Dates: start: 20100423, end: 20130117
  3. CIMZIA [Suspect]
     Indication: RHEUMATOID ARTHRITIS
     Dosage: 400 MG ONCE IN EVERY 2 WEEKS
     Route: 058
     Dates: start: 20100312, end: 20100409
  4. SULFASALAZINE [Concomitant]
     Indication: RHEUMATOID ARTHRITIS
     Dosage: 500 MG BID
     Route: 048
     Dates: start: 20100601
  5. CELEBREX [Concomitant]
     Indication: RHEUMATOID ARTHRITIS
     Route: 048
     Dates: start: 2006

REACTIONS (5)
  - Oral herpes [Recovered/Resolved]
  - Nasopharyngitis [Recovered/Resolved]
  - Joint stiffness [Unknown]
  - Arthralgia [Unknown]
  - Urticaria [Unknown]
